FAERS Safety Report 24897026 (Version 1)
Quarter: 2025Q1

REPORT INFORMATION
  Report Type: Spontaneous
  Country: GB (occurrence: GB)
  Receive Date: 20250128
  Receipt Date: 20250128
  Transmission Date: 20250409
  Serious: No
  Sender: ALKEM
  Company Number: GB-ALKEM LABORATORIES LIMITED-GB-ALKEM-2024-15426

PATIENT
  Age: 88 Year
  Sex: Female

DRUGS (1)
  1. CEPHALEXIN [Suspect]
     Active Substance: CEPHALEXIN
     Indication: Cystitis
     Route: 065

REACTIONS (4)
  - Arthralgia [Unknown]
  - Vulvovaginal inflammation [Unknown]
  - Nausea [Unknown]
  - Hallucination [Unknown]
